FAERS Safety Report 20186351 (Version 1)
Quarter: 2021Q4

REPORT INFORMATION
  Report Type: Spontaneous
  Country: US (occurrence: US)
  Receive Date: 20211215
  Receipt Date: 20211215
  Transmission Date: 20220303
  Serious: No
  Sender: FDA-Public Use
  Company Number: US-RECKITT BENCKISER HEALTHCARE INT LIMITED-RB-80655-2021

PATIENT
  Sex: Male

DRUGS (1)
  1. DELSYM COUGH PLUS SORE THROAT [Suspect]
     Active Substance: ACETAMINOPHEN\DEXTROMETHORPHAN HYDROBROMIDE
     Indication: Nasopharyngitis
     Dosage: UNK
     Route: 048

REACTIONS (3)
  - Nausea [Unknown]
  - Illness [Unknown]
  - Taste disorder [Unknown]
